FAERS Safety Report 8771934 (Version 1)
Quarter: 2012Q4

REPORT INFORMATION
  Report Type: Report from Study
  Country: US (occurrence: US)
  Receive Date: 20120906
  Receipt Date: 20120906
  Transmission Date: 20130627
  Serious: Yes (Other)
  Sender: FDA-Public Use
  Company Number: US-JNJFOC-20120901109

PATIENT
  Age: 76 None
  Sex: Female
  Weight: 81.65 kg

DRUGS (2)
  1. XARELTO [Suspect]
     Indication: CEREBROVASCULAR ACCIDENT PROPHYLAXIS
     Route: 048
     Dates: start: 201206, end: 20120830
  2. XARELTO [Suspect]
     Indication: ATRIAL FIBRILLATION
     Route: 048
     Dates: start: 201206, end: 20120830

REACTIONS (2)
  - Joint effusion [Recovered/Resolved]
  - Blood urine present [Recovering/Resolving]
